FAERS Safety Report 13737445 (Version 1)
Quarter: 2017Q3

REPORT INFORMATION
  Report Type: Spontaneous
  Country: US (occurrence: US)
  Receive Date: 20170710
  Receipt Date: 20170710
  Transmission Date: 20171127
  Serious: No
  Sender: FDA-Public Use
  Company Number: US-VERTEX PHARMACEUTICALS-2017-003516

PATIENT
  Sex: Female

DRUGS (17)
  1. LANSOPRAZOLE. [Concomitant]
     Active Substance: LANSOPRAZOLE
  2. AMOXICILLIN. [Concomitant]
     Active Substance: AMOXICILLIN
  3. CIPROFLOXACIN. [Concomitant]
     Active Substance: CIPROFLOXACIN
  4. CREON [Concomitant]
     Active Substance: PANCRELIPASE AMYLASE\PANCRELIPASE LIPASE\PANCRELIPASE PROTEASE
  5. PULMOZYME [Concomitant]
     Active Substance: DORNASE ALFA
  6. TOBI [Concomitant]
     Active Substance: TOBRAMYCIN
  7. ANTIPYRINE + BENZOCAINE [Concomitant]
  8. MIRALAX [Concomitant]
     Active Substance: POLYETHYLENE GLYCOL 3350
  9. ALBUTEROL. [Concomitant]
     Active Substance: ALBUTEROL
  10. SOURCECF PEDIATRIC [Concomitant]
     Active Substance: VITAMINS
  11. AUGMENTIN [Concomitant]
     Active Substance: AMOXICILLIN\CLAVULANATE POTASSIUM
  12. ORKAMBI [Suspect]
     Active Substance: IVACAFTOR\LUMACAFTOR
     Indication: CYSTIC FIBROSIS
     Dosage: UNK, BID
     Route: 048
     Dates: start: 201612
  13. PREVACID [Concomitant]
     Active Substance: LANSOPRAZOLE
  14. BACTRIM [Concomitant]
     Active Substance: SULFAMETHOXAZOLE\TRIMETHOPRIM
  15. FLONASE [Concomitant]
     Active Substance: FLUTICASONE PROPIONATE
  16. NASONEX [Concomitant]
     Active Substance: MOMETASONE FUROATE
  17. AQUADEKS [Concomitant]
     Active Substance: MINERALS\VITAMINS

REACTIONS (2)
  - Infective pulmonary exacerbation of cystic fibrosis [Unknown]
  - Infection [Unknown]

NARRATIVE: CASE EVENT DATE: 2017
